FAERS Safety Report 6216529-X (Version None)
Quarter: 2009Q2

REPORT INFORMATION
  Report Type: 
  Country: None (occurrence: None)
  Receive Date: 20090605
  Receipt Date: 20090526
  Transmission Date: 20091009
  Serious: Yes (Death)
  Sender: FDA-Public Use
  Company Number: JP-AMGEN-US341688

PATIENT
  Sex: Female

DRUGS (5)
  1. ENBREL [Suspect]
     Indication: RHEUMATOID ARTHRITIS
     Route: 058
     Dates: start: 20071006
  2. METHOTREXATE [Suspect]
     Dosage: UNSPECIFIED
     Dates: end: 20080426
  3. PREDNISOLONE [Concomitant]
     Dates: start: 20080426
  4. PREDNISOLONE [Concomitant]
     Dates: start: 20080524, end: 20080801
  5. PREDNISOLONE [Concomitant]
     Dates: start: 20080813

REACTIONS (3)
  - CARDIO-RESPIRATORY ARREST [None]
  - COMPRESSION FRACTURE [None]
  - LUNG DISORDER [None]
